FAERS Safety Report 6396714-7 (Version None)
Quarter: 2009Q4

REPORT INFORMATION
  Report Type: 
  Country: None (occurrence: None)
  Receive Date: 20091008
  Receipt Date: 20091008
  Transmission Date: 20100525
  Serious: Yes (Hospitalization)
  Sender: FDA-Public Use
  Company Number: None

PATIENT
  Sex: Male
  Weight: 105.1 kg

DRUGS (4)
  1. FLUOROURACIL [Suspect]
     Dosage: 6384 MG
  2. BEVACIZUMAB (RHUMAB VEGF) [Suspect]
     Dosage: 530 MG
  3. LEUCOVORIN CALCIUM [Suspect]
     Dosage: 912 MG
  4. ELOXATIN [Suspect]
     Dosage: 148 MG

REACTIONS (1)
  - DEEP VEIN THROMBOSIS [None]
